FAERS Safety Report 5592524-9 (Version None)
Quarter: 2008Q1

REPORT INFORMATION
  Report Type: 
  Country: None (occurrence: None)
  Receive Date: 20080111
  Receipt Date: 20080109
  Transmission Date: 20080703
  Serious: Yes (Hospitalization)
  Sender: FDA-Public Use
  Company Number: 2007SP025190

PATIENT

DRUGS (11)
  1. AERIUS                                      (DESLORATADINE) [Suspect]
     Indication: BRONCHIECTASIS
     Dosage: 5 MG; PO
     Route: 048
     Dates: end: 20070917
  2. TERCIAN                             (CYAMEMAZINE) [Suspect]
     Dosage: 100 GTT;QD;PO
     Route: 048
     Dates: start: 20070913, end: 20070917
  3. RISPERDAL [Suspect]
     Dosage: 2 ML;HS;PO
     Route: 048
     Dates: start: 20070913, end: 20070917
  4. CLONAZEPAM [Suspect]
     Dosage: 40 GTT;QD;PO
  5. CLONAZEPAM [Suspect]
     Dosage: 40 GTT;QD;
     Dates: start: 20070918
  6. GUTRON                               (MIDODRINE HYDROCHLORIDE) [Suspect]
     Indication: HYPOTENSION
     Dosage: 6 DF;QD; : 6 DF;QD
     Dates: start: 20070913, end: 20070917
  7. GUTRON                               (MIDODRINE HYDROCHLORIDE) [Suspect]
     Indication: HYPOTENSION
     Dosage: 6 DF;QD; : 6 DF;QD
     Dates: start: 20070918
  8. ZOPICLONE                    (ZOPICLONE) [Suspect]
     Dosage: 1 DF;QPM;PO
     Route: 048
     Dates: start: 20070913, end: 20070917
  9. ZOPICLONE                       (ZOPICLONE) [Suspect]
     Dosage: 1 DF;QPM;
     Dates: start: 20070918
  10. SULFARLEM                   (ANETHOLE TRITHIONE) [Suspect]
     Dosage: 2 DF;TID;PO
     Route: 048
     Dates: start: 20070913, end: 20070917
  11. LEPTICUR                      (TROPATEPINE HYDROCHLORIDE) [Suspect]
     Dosage: 10 MG;PO
     Route: 048
     Dates: start: 20070913, end: 20070917

REACTIONS (4)
  - DYSPHAGIA [None]
  - FUNGAL INFECTION [None]
  - LIP OEDEMA [None]
  - PARANOIA [None]
